FAERS Safety Report 6135117-7 (Version None)
Quarter: 2009Q1

REPORT INFORMATION
  Report Type: 
  Country: None (occurrence: None)
  Receive Date: 20090327
  Receipt Date: 20090319
  Transmission Date: 20090719
  Serious: Yes (Other)
  Sender: FDA-Public Use
  Company Number: SE-JNJFOC-20090305069

PATIENT
  Sex: Female

DRUGS (3)
  1. HALDOL [Suspect]
     Indication: OBSESSIVE THOUGHTS
     Route: 065
  2. HALDOL [Suspect]
     Indication: HALLUCINATION
     Route: 065
  3. HALDOL [Suspect]
     Indication: SCHIZOPHRENIA
     Route: 065

REACTIONS (5)
  - ARTHRALGIA [None]
  - JOINT SWELLING [None]
  - MUSCLE ATROPHY [None]
  - SCIATICA [None]
  - VISUAL IMPAIRMENT [None]
